FAERS Safety Report 7493878-9 (Version None)
Quarter: 2011Q2

REPORT INFORMATION
  Report Type: 
  Country: None (occurrence: None)
  Receive Date: 20110520
  Receipt Date: 20110516
  Transmission Date: 20111010
  Serious: Yes (Hospitalization, Disabling, Other)
  Sender: FDA-Public Use
  Company Number: ES-ROCHE-713019

PATIENT
  Sex: Male
  Weight: 80 kg

DRUGS (3)
  1. PEMETREXED [Suspect]
     Indication: NON-SMALL CELL LUNG CANCER
     Dosage: LAST DOSE PRIOR TO SAE: 17 JUNE 2010, PERMANENTLY DISCONTINUED
     Route: 042
     Dates: start: 20100527, end: 20100701
  2. BEVACIZUMAB [Suspect]
     Indication: NON-SMALL CELL LUNG CANCER
     Dosage: LAST DOSE PRIOR TO SAE: 17 JUN 2010, PERMANENTLY DISCONTINUED
     Route: 042
     Dates: start: 20100527, end: 20100701
  3. CISPLATIN [Suspect]
     Indication: NON-SMALL CELL LUNG CANCER
     Dosage: LAST DOSE PRIOR TO SAE: 17 JUNE 2010, PERMANENTLY DISCONTINUED
     Route: 042
     Dates: start: 20100527, end: 20100701

REACTIONS (4)
  - DIARRHOEA [None]
  - NEUTROPENIA [None]
  - MUCOSAL INFLAMMATION [None]
  - RENAL FAILURE [None]
